FAERS Safety Report 8633256 (Version 3)
Quarter: 2013Q4

REPORT INFORMATION
  Report Type: Spontaneous
  Country: US (occurrence: US)
  Receive Date: 20120625
  Receipt Date: 20131108
  Transmission Date: 20140711
  Serious: Yes (Other)
  Sender: FDA-Public Use
  Company Number: US-009507513-1206USA03268

PATIENT
  Sex: Female
  Weight: 63.49 kg

DRUGS (6)
  1. ZOCOR [Suspect]
     Indication: BLOOD CHOLESTEROL INCREASED
     Route: 048
  2. LIPITOR [Suspect]
     Indication: BLOOD CHOLESTEROL INCREASED
     Dosage: UNK UNK, QD
     Dates: start: 2007, end: 2007
  3. EFFEXOR XR [Concomitant]
     Indication: ANXIETY
     Dosage: 75 MG, QD
  4. PREMPRO [Concomitant]
     Indication: HORMONE REPLACEMENT THERAPY
  5. RED YEAST [Suspect]
     Indication: BLOOD CHOLESTEROL INCREASED
  6. STATIN (UNSPECIFIED) [Suspect]

REACTIONS (9)
  - Paralysis [Recovered/Resolved]
  - Myalgia [Recovered/Resolved]
  - Muscle spasms [Recovered/Resolved]
  - Adverse event [Not Recovered/Not Resolved]
  - Movement disorder [Not Recovered/Not Resolved]
  - Pain in extremity [Not Recovered/Not Resolved]
  - Blood cholesterol increased [Unknown]
  - Drug ineffective [Unknown]
  - Hypokinesia [Unknown]
